FAERS Safety Report 8369586-9 (Version None)
Quarter: 2012Q1

REPORT INFORMATION
  Report Type: 
  Country: None (occurrence: None)
  Receive Date: 20120323
  Receipt Date: 20111206
  Transmission Date: 20120608
  Serious: Yes (Disabling)
  Sender: FDA-Public Use
  Company Number: 163-21880-1112724

PATIENT
  Age: 80 Year
  Sex: Female

DRUGS (8)
  1. ACETAMINOPHEN [Concomitant]
  2. ATENOLOL [Concomitant]
  3. REVLIMID [Suspect]
     Indication: MULTIPLE MYELOMA
     Dosage: 10 MG, DAILY FOR 10 DAYS, PO
     Route: 048
     Dates: start: 20101028
  4. HYDROCHLOROTHIAZIDE [Concomitant]
  5. NAPROSYN [Concomitant]
  6. VITAMIN D [Concomitant]
  7. CHROMIUM PICOLINATE [Concomitant]
  8. ATIVAN [Concomitant]

REACTIONS (2)
  - FATIGUE [None]
  - GAIT DISTURBANCE [None]
